FAERS Safety Report 8822171 (Version 1)
Quarter: 2012Q4

REPORT INFORMATION
  Report Type: 
  Country: US (occurrence: US)
  Receive Date: 20121003
  Receipt Date: 20121003
  Transmission Date: 20130627
  Serious: No
  Sender: FDA-Public Use
  Company Number: US-009507513-1209USA002938

PATIENT

DRUGS (4)
  1. SINGULAIR [Suspect]
     Indication: HYPERSENSITIVITY
     Dosage: UNK, qd
     Route: 048
     Dates: start: 2005, end: 20120831
  2. SANCTURA [Concomitant]
  3. FLUTICASONE [Concomitant]
  4. DILTIAZEM HYDROCHLORIDE [Concomitant]

REACTIONS (2)
  - Pollakiuria [Recovering/Resolving]
  - Urinary incontinence [Recovering/Resolving]
